FAERS Safety Report 10488156 (Version 3)
Quarter: 2014Q4

REPORT INFORMATION
  Report Type: Report from Study
  Country: US (occurrence: US)
  Receive Date: 20141002
  Receipt Date: 20141211
  Transmission Date: 20150528
  Serious: No
  Sender: FDA-Public Use
  Company Number: US-AMGEN INC.-USASL2014075328

PATIENT
  Age: 2 Year
  Sex: Female
  Weight: 11.3 kg

DRUGS (4)
  1. ENBREL [Suspect]
     Active Substance: ETANERCEPT
     Indication: JUVENILE IDIOPATHIC ARTHRITIS
     Dosage: 10 MG, QWK
     Route: 058
     Dates: start: 20140918
  2. FOLIC ACID. [Concomitant]
     Active Substance: FOLIC ACID
     Dosage: 1 MG, QD
     Route: 048
     Dates: start: 20140918
  3. METHOTREXATE [Concomitant]
     Active Substance: METHOTREXATE
     Dosage: 10 MG, QWK
     Route: 058
     Dates: start: 20140627
  4. MELOXICAM. [Concomitant]
     Active Substance: MELOXICAM
     Dosage: 2.5 MG, QD
     Route: 048
     Dates: start: 20140627

REACTIONS (5)
  - Dizziness [Unknown]
  - Irritability [Not Recovered/Not Resolved]
  - Presyncope [Unknown]
  - Decreased appetite [Not Recovered/Not Resolved]
  - Crying [Unknown]
